FAERS Safety Report 14396869 (Version 1)
Quarter: 2018Q1

REPORT INFORMATION
  Report Type: Spontaneous
  Country: US (occurrence: US)
  Receive Date: 20180116
  Receipt Date: 20180116
  Transmission Date: 20180509
  Serious: No
  Sender: FDA-Public Use
  Company Number: US-MYLANLABS-2017M1083955

PATIENT
  Age: 34 Year
  Sex: Female
  Weight: 86.17 kg

DRUGS (2)
  1. GLATIRAMER ACETATE INJECTION [Suspect]
     Active Substance: GLATIRAMER ACETATE
     Indication: MULTIPLE SCLEROSIS
     Route: 058
     Dates: start: 20171211
  2. BACLOFEN. [Concomitant]
     Active Substance: BACLOFEN
     Indication: MULTIPLE SCLEROSIS

REACTIONS (9)
  - Hypoaesthesia [Unknown]
  - Injection site bruising [Unknown]
  - Injection site pain [Unknown]
  - Muscular weakness [Unknown]
  - Injection site mass [Unknown]
  - Injection site discolouration [Unknown]
  - Paraesthesia [Unknown]
  - Injection site erythema [Unknown]
  - Injection site swelling [Unknown]

NARRATIVE: CASE EVENT DATE: 20171211
